FAERS Safety Report 8830539 (Version 1)
Quarter: 2012Q4

REPORT INFORMATION
  Report Type: Spontaneous
  Country: US (occurrence: None)
  Receive Date: 20121005
  Receipt Date: 20121005
  Transmission Date: 20130627
  Serious: Yes (Life-Threatening, Other)
  Sender: FDA-Public Use
  Company Number: 2012P1060211

PATIENT

DRUGS (3)
  1. PREDNISONE [Suspect]
     Indication: MYASTHENIA GRAVIS
  2. METOPROLOL [Concomitant]
  3. CAPTOPRIL [Concomitant]

REACTIONS (2)
  - Hypertension [None]
  - Myocardial infarction [None]
